FAERS Safety Report 10229420 (Version 2)
Quarter: 2015Q2

REPORT INFORMATION
  Report Type: Spontaneous
  Country: US (occurrence: None)
  Receive Date: 20140609
  Receipt Date: 20150410
  Transmission Date: 20150821
  Serious: Yes (Other)
  Sender: FDA-Public Use
  Company Number: ADR-2013-01022

PATIENT
  Age: 53 Year
  Sex: Female

DRUGS (2)
  1. COMPOUNDED BACLOFEN INTRATHECAL [Suspect]
     Active Substance: BACLOFEN
     Indication: PAIN
  2. DILAUDID [Suspect]
     Active Substance: HYDROMORPHONE HYDROCHLORIDE

REACTIONS (24)
  - Burning sensation [None]
  - Poisoning [None]
  - Myalgia [None]
  - Paraesthesia [None]
  - Fatigue [None]
  - Arthralgia [None]
  - Overdose [None]
  - Discomfort [None]
  - Headache [None]
  - Nausea [None]
  - Drug withdrawal syndrome [None]
  - Muscle spasms [None]
  - Feeling abnormal [None]
  - Neck pain [None]
  - Device infusion issue [None]
  - Malaise [None]
  - Myofascial pain syndrome [None]
  - Post procedural complication [None]
  - Back pain [None]
  - Pain [None]
  - Musculoskeletal stiffness [None]
  - Pain in extremity [None]
  - Device malfunction [None]
  - Compartment syndrome [None]

NARRATIVE: CASE EVENT DATE: 20130520
